FAERS Safety Report 11095751 (Version 1)
Quarter: 2015Q2

REPORT INFORMATION
  Report Type: Spontaneous
  Country: AR (occurrence: AR)
  Receive Date: 20150507
  Receipt Date: 20150507
  Transmission Date: 20150821
  Serious: Yes (Other)
  Sender: FDA-Public Use
  Company Number: AR-AMGEN-ARGSP2015043453

PATIENT
  Age: 68 Year
  Sex: Female

DRUGS (1)
  1. ENBREL [Suspect]
     Active Substance: ETANERCEPT
     Indication: ANKYLOSING SPONDYLITIS
     Dosage: 50 MG, WEEKLY
     Route: 065
     Dates: start: 20080606

REACTIONS (6)
  - Cataract [Recovered/Resolved]
  - Infection [Recovering/Resolving]
  - Decreased immune responsiveness [Recovering/Resolving]
  - Visual acuity reduced [Recovering/Resolving]
  - Uveitis [Recovering/Resolving]
  - Arthropathy [Recovered/Resolved]

NARRATIVE: CASE EVENT DATE: 2009
